FAERS Safety Report 12790050 (Version 2)
Quarter: 2016Q3

REPORT INFORMATION
  Report Type: Spontaneous
  Country: None (occurrence: US)
  Receive Date: 20160928
  Receipt Date: 20160930
  Transmission Date: 20161109
  Serious: No
  Sender: FDA-Public Use
  Company Number: US-RARE DISEASE THERAPEUTICS, INC.-1057817

PATIENT
  Age: 8 Year
  Sex: Male
  Weight: 22.35 kg

DRUGS (11)
  1. LEUCOVORIN. [Concomitant]
     Active Substance: LEUCOVORIN
  2. PROPIMEX-1 [Concomitant]
  3. CYSTADANE [Suspect]
     Active Substance: BETAINE
     Indication: VITAMIN B12 DEFICIENCY
     Dates: start: 201006, end: 20140711
  4. CYSTADANE [Suspect]
     Active Substance: BETAINE
     Dates: start: 20140711
  5. VITAMIN B12 [Concomitant]
     Active Substance: CYANOCOBALAMIN
  6. DIASTAT [Concomitant]
     Active Substance: DIAZEPAM
  7. ALLEGRA [Concomitant]
     Active Substance: FEXOFENADINE HYDROCHLORIDE
  8. L-CARNITINE [Concomitant]
     Active Substance: LEVOCARNITINE
  9. TRILEPTAL [Concomitant]
     Active Substance: OXCARBAZEPINE
  10. SINGULAIR [Concomitant]
     Active Substance: MONTELUKAST SODIUM
  11. FLOVENT [Concomitant]
     Active Substance: FLUTICASONE PROPIONATE

REACTIONS (2)
  - Rash [Not Recovered/Not Resolved]
  - Overdose [None]

NARRATIVE: CASE EVENT DATE: 20160515
